FAERS Safety Report 19304100 (Version 1)
Quarter: 2021Q2

REPORT INFORMATION
  Report Type: Spontaneous
  Country: US (occurrence: US)
  Receive Date: 20210525
  Receipt Date: 20210525
  Transmission Date: 20210717
  Serious: No
  Sender: FDA-Public Use
  Company Number: US-SA-2021SA169439

PATIENT
  Age: 15 Year
  Sex: Male
  Weight: 81.65 kg

DRUGS (7)
  1. XELJANZ [Concomitant]
     Active Substance: TOFACITINIB CITRATE
  2. ABROCITINIB. [Concomitant]
     Active Substance: ABROCITINIB
     Dosage: UNK
     Dates: start: 2019, end: 2020
  3. GUANFACINE. [Concomitant]
     Active Substance: GUANFACINE
     Dosage: UNK
  4. DUPIXENT [Suspect]
     Active Substance: DUPILUMAB
  5. DEXMETHYLPHENIDATE [Concomitant]
     Active Substance: DEXMETHYLPHENIDATE HYDROCHLORIDE
     Indication: ATTENTION DEFICIT HYPERACTIVITY DISORDER
  6. COVID?19 VACCINE NOS. [Concomitant]
     Active Substance: COVID-19 VACCINE NOS
     Indication: COVID-19 IMMUNISATION
  7. DEXMETHYLPHENIDATE [Concomitant]
     Active Substance: DEXMETHYLPHENIDATE HYDROCHLORIDE
     Indication: POST-TRAUMATIC STRESS DISORDER

REACTIONS (5)
  - Rash macular [Unknown]
  - Rebound effect [Not Recovered/Not Resolved]
  - Inflammation [Unknown]
  - Pruritus [Unknown]
  - Condition aggravated [Not Recovered/Not Resolved]

NARRATIVE: CASE EVENT DATE: 2020
